FAERS Safety Report 5794532-1 (Version None)
Quarter: 2008Q2

REPORT INFORMATION
  Report Type: 
  Country: None (occurrence: None)
  Receive Date: 20080626
  Receipt Date: 20080613
  Transmission Date: 20081010
  Serious: No
  Sender: FDA-Public Use
  Company Number: 2008-176696-NL

PATIENT
  Age: 83 Year
  Sex: Male

DRUGS (16)
  1. PANCURONIUM BROMIDE [Suspect]
     Indication: ANAESTHESIA PROCEDURE
     Dosage: 0.33 MG Q1H/0.2 MG Q1HR, INTRAVENOUS DRIP
     Route: 041
     Dates: start: 20080409, end: 20080420
  2. PANCURONIUM BROMIDE [Suspect]
     Indication: ANAESTHESIA PROCEDURE
     Dosage: 0.33 MG Q1H/0.2 MG Q1HR, INTRAVENOUS DRIP
     Route: 041
     Dates: start: 20080420, end: 20080423
  3. MIDAZOLAM HCL [Concomitant]
  4. DIAZEPAM [Concomitant]
  5. PROPOFOL [Concomitant]
  6. DALTEPARIN SODIUM [Concomitant]
  7. CEFEPIME HYDROCHLORIDE [Concomitant]
  8. PAZUFLOXACIN [Concomitant]
  9. IMMUNOGLOGBULIN HUMAN NORMAL [Concomitant]
  10. METHYLPREDNISOLOE SODIUM SUCCINATE [Concomitant]
  11. SODIUM POLYSTYRENE SULFONATE [Concomitant]
  12. HALOPERIDOL [Concomitant]
  13. MINOCYCLINE HYDROCHLORIDE [Concomitant]
  14. VANCOMYCIN HYDROCHLORIDE [Concomitant]
  15. NITROGLYCERIN [Concomitant]
  16. MEROPENEM TRIHYDRATE [Concomitant]

REACTIONS (2)
  - DYSPHASIA [None]
  - QUADRIPLEGIA [None]
